FAERS Safety Report 8014276-5 (Version None)
Quarter: 2011Q4

REPORT INFORMATION
  Report Type: 
  Country: None (occurrence: None)
  Receive Date: 20111229
  Receipt Date: 20111221
  Transmission Date: 20120403
  Serious: Yes (Other)
  Sender: FDA-Public Use
  Company Number: JP-GLAXOSMITHKLINE-B0770899A

PATIENT
  Sex: Male

DRUGS (1)
  1. FLUNASE 50 MCG 28 METERED SPRAYS [Suspect]
     Indication: PRODUCT USED FOR UNKNOWN INDICATION
     Route: 045
     Dates: start: 20070101

REACTIONS (1)
  - RETINAL DETACHMENT [None]
